FAERS Safety Report 6543753-9 (Version None)
Quarter: 2010Q1

REPORT INFORMATION
  Report Type: 
  Country: None (occurrence: None)
  Receive Date: 20100119
  Receipt Date: 20100119
  Transmission Date: 20100710
  Serious: No
  Sender: FDA-Public Use
  Company Number: None

PATIENT
  Age: 7 Year
  Sex: Male
  Weight: 18.5975 kg

DRUGS (1)
  1. MOTRIN [Suspect]
     Indication: HEADACHE
     Dosage: 1 AND 1/2 ONCE PO
     Route: 048
     Dates: start: 20100102, end: 20100102

REACTIONS (2)
  - GASTROENTERITIS VIRAL [None]
  - PRODUCT QUALITY ISSUE [None]
